FAERS Safety Report 17870697 (Version 1)
Quarter: 2020Q2

REPORT INFORMATION
  Report Type: Spontaneous
  Country: US (occurrence: US)
  Receive Date: 20200607
  Receipt Date: 20200607
  Transmission Date: 20200714
  Serious: Yes (Other)
  Sender: FDA-Public Use
  Company Number: None

PATIENT
  Age: 81 Year
  Sex: Female
  Weight: 76.5 kg

DRUGS (8)
  1. BLOOD PRESSURE MED [Concomitant]
  2. VITAMIN B [Concomitant]
     Active Substance: VITAMIN B
  3. NP THYROID [Suspect]
     Active Substance: LEVOTHYROXINE\LIOTHYRONINE
     Indication: THYROIDECTOMY
     Route: 048
  4. VITAMINS NOS [Concomitant]
     Active Substance: VITAMINS
  5. CHOLESTEROL MED [Concomitant]
  6. MULTI VITAMINS [Concomitant]
     Active Substance: VITAMINS
  7. HEART MED [Concomitant]
  8. NEUTHOPY MED [Concomitant]

REACTIONS (3)
  - Myalgia [None]
  - Asthenia [None]
  - Fatigue [None]

NARRATIVE: CASE EVENT DATE: 20200301
